FAERS Safety Report 17397799 (Version 2)
Quarter: 2020Q1

REPORT INFORMATION
  Report Type: Spontaneous
  Country: US (occurrence: US)
  Receive Date: 20200210
  Receipt Date: 20200227
  Transmission Date: 20200409
  Serious: Yes (Other)
  Sender: FDA-Public Use
  Company Number: US-009507513-2002USA003173

PATIENT
  Sex: Female

DRUGS (1)
  1. NEXPLANON [Suspect]
     Active Substance: ETONOGESTREL
     Dosage: 1 DOSAGE FORM
     Dates: end: 2019

REACTIONS (4)
  - Implant site pain [Unknown]
  - Complication of device removal [Recovered/Resolved]
  - Wrong technique in product usage process [Unknown]
  - Device deployment issue [Recovered/Resolved]
